FAERS Safety Report 15439337 (Version 4)
Quarter: 2018Q4

REPORT INFORMATION
  Report Type: Spontaneous
  Country: AU (occurrence: AU)
  Receive Date: 20180928
  Receipt Date: 20181128
  Transmission Date: 20190204
  Serious: Yes (Hospitalization, Other)
  Sender: FDA-Public Use
  Company Number: AU-ABBVIE-18K-008-2500860-00

PATIENT
  Age: 49 Year
  Sex: Male
  Weight: 80 kg

DRUGS (5)
  1. HUMIRA [Suspect]
     Active Substance: ADALIMUMAB
     Route: 058
     Dates: start: 201306, end: 201509
  2. HUMIRA [Suspect]
     Active Substance: ADALIMUMAB
     Route: 058
     Dates: start: 201208, end: 201302
  3. HUMIRA [Suspect]
     Active Substance: ADALIMUMAB
     Indication: ANKYLOSING SPONDYLITIS
     Route: 058
     Dates: start: 20080225, end: 201004
  4. HUMIRA [Suspect]
     Active Substance: ADALIMUMAB
     Route: 058
     Dates: start: 201108, end: 201111
  5. HUMIRA [Suspect]
     Active Substance: ADALIMUMAB
     Route: 058
     Dates: start: 201111, end: 201208

REACTIONS (13)
  - Malignant melanoma [Recovered/Resolved]
  - Ankylosing spondylitis [Recovered/Resolved]
  - Joint effusion [Unknown]
  - Ankylosing spondylitis [Recovered/Resolved]
  - Malignant melanoma [Recovered/Resolved]
  - Psoriasis [Not Recovered/Not Resolved]
  - Osteoporosis [Unknown]
  - Loss of personal independence in daily activities [Unknown]
  - Crohn^s disease [Recovered/Resolved]
  - Crohn^s disease [Recovered/Resolved]
  - Iritis [Unknown]
  - Herpes zoster [Unknown]
  - Crohn^s disease [Recovered/Resolved]

NARRATIVE: CASE EVENT DATE: 201004
